FAERS Safety Report 4563025-1 (Version None)
Quarter: 2005Q1

REPORT INFORMATION
  Report Type: 
  Country: None (occurrence: None)
  Receive Date: 20050126
  Receipt Date: 20050112
  Transmission Date: 20050727
  Serious: Yes (Hospitalization)
  Sender: FDA-Public Use
  Company Number: UKO05000014

PATIENT
  Sex: Male

DRUGS (1)
  1. VICKS VAPORUB DECONGESTANT FOR COLDS, REGULAR SCENT (CAMPHOR 149.5 MG, [Suspect]
     Dosage: 1 APPLICATION, ONCE ONLY, TOPICAL
     Route: 061

REACTIONS (2)
  - ANAPHYLACTIC REACTION [None]
  - HYPERSENSITIVITY [None]
